FAERS Safety Report 12279906 (Version 2)
Quarter: 2016Q2

REPORT INFORMATION
  Report Type: Spontaneous
  Country: US (occurrence: US)
  Receive Date: 20160418
  Receipt Date: 20160611
  Transmission Date: 20160815
  Serious: Yes (Hospitalization, Other)
  Sender: FDA-Public Use
  Company Number: US-TEVA-652224USA

PATIENT
  Sex: Female
  Weight: 104.42 kg

DRUGS (3)
  1. ESCITALOPRAM [Suspect]
     Active Substance: ESCITALOPRAM OXALATE
     Indication: DEPRESSION
     Route: 065
     Dates: end: 20131215
  2. CLONAZEPAM. [Suspect]
     Active Substance: CLONAZEPAM
     Indication: ANXIETY
     Route: 065
     Dates: end: 20131215
  3. TRAMADOL. [Suspect]
     Active Substance: TRAMADOL
     Route: 065

REACTIONS (11)
  - Self injurious behaviour [Unknown]
  - Decreased appetite [Unknown]
  - Treatment noncompliance [Unknown]
  - Haemorrhage [Unknown]
  - Abdominal pain upper [Unknown]
  - Malaise [Unknown]
  - Hallucination [Unknown]
  - Urinary incontinence [Unknown]
  - Loss of consciousness [Unknown]
  - Anaemia [Unknown]
  - Nausea [Unknown]
